FAERS Safety Report 13508173 (Version 4)
Quarter: 2017Q3

REPORT INFORMATION
  Report Type: Spontaneous
  Country: JP (occurrence: JP)
  Receive Date: 20170503
  Receipt Date: 20170801
  Transmission Date: 20171127
  Serious: Yes (Hospitalization)
  Sender: FDA-Public Use
  Company Number: JP-009507513-1704JPN001343J

PATIENT
  Age: 84 Year
  Sex: Female
  Weight: 47 kg

DRUGS (9)
  1. OLMETEC [Interacting]
     Active Substance: OLMESARTAN MEDOXOMIL
     Indication: HYPERTENSION
     Dosage: 10 MG, QD (FORMULATION: ORODISPERSIBLE TABLET)
     Route: 048
  2. FERROSTEC [Interacting]
     Active Substance: SODIUM FERROUS CITRATE
     Indication: IRON DEFICIENCY ANAEMIA
     Dosage: 50 MG, QD
     Route: 048
  3. ERELSA TABLETS 50MG [Suspect]
     Active Substance: ELBASVIR
     Indication: CHRONIC HEPATITIS C
     Dosage: 50 MG, QD
     Route: 048
     Dates: start: 20170308
  4. ROXATIDINE ACETATE HYDROCHLORIDE [Interacting]
     Active Substance: ROXATIDINE ACETATE HYDROCHLORIDE
     Indication: GASTROOESOPHAGEAL REFLUX DISEASE
  5. ROXATIDINE ACETATE HYDROCHLORIDE [Interacting]
     Active Substance: ROXATIDINE ACETATE HYDROCHLORIDE
     Indication: GASTRIC ULCER
     Dosage: 75 MG, BID
     Route: 048
  6. CALBLOCK [Interacting]
     Active Substance: AZELNIDIPINE
     Indication: HYPERTENSION
     Dosage: 8 MG, QD
     Route: 048
  7. ERELSA TABLETS 50MG [Interacting]
     Active Substance: ELBASVIR
     Indication: HEPATIC CIRRHOSIS
  8. GRAZYNA TABLETS 50MG [Interacting]
     Active Substance: GRAZOPREVIR
     Indication: CHRONIC HEPATITIS C
     Dosage: 100 MG, QD
     Route: 048
     Dates: start: 20170308
  9. GRAZYNA TABLETS 50MG [Interacting]
     Active Substance: GRAZOPREVIR
     Indication: HEPATIC CIRRHOSIS

REACTIONS (2)
  - Oedema peripheral [Recovering/Resolving]
  - Drug interaction [Unknown]

NARRATIVE: CASE EVENT DATE: 2017
